FAERS Safety Report 21554135 (Version 1)
Quarter: 2022Q4

REPORT INFORMATION
  Report Type: Other
  Country: US (occurrence: US)
  Receive Date: 20221104
  Receipt Date: 20221104
  Transmission Date: 20230113
  Serious: No
  Sender: FDA-Public Use
  Company Number: US-AstraZeneca-2022A320295

PATIENT
  Sex: Male

DRUGS (1)
  1. TUDORZA PRESSAIR [Suspect]
     Active Substance: ACLIDINIUM BROMIDE
     Indication: Product used for unknown indication
     Dosage: 400 MCG INHALER (INHALE 1 PUFF TWICE DAILY)
     Route: 055

REACTIONS (3)
  - Hernia [Unknown]
  - Dyspnoea [Unknown]
  - Product dose omission issue [Unknown]
